FAERS Safety Report 23377909 (Version 1)
Quarter: 2024Q1

REPORT INFORMATION
  Report Type: Spontaneous
  Country: US (occurrence: None)
  Receive Date: 20240105
  Receipt Date: 20240105
  Transmission Date: 20240410
  Serious: Yes (Life-Threatening, Hospitalization)
  Sender: FDA-Public Use
  Company Number: None

PATIENT
  Age: 36 Year
  Sex: Female
  Weight: 101.25 kg

DRUGS (1)
  1. MOUNJARO [Suspect]
     Active Substance: TIRZEPATIDE
     Indication: Obesity
     Dosage: OTHER FREQUENCY : WEEKLY;?
     Route: 058
     Dates: start: 20220808, end: 20221024

REACTIONS (7)
  - Starvation ketoacidosis [None]
  - Metabolic encephalopathy [None]
  - Rhabdomyolysis [None]
  - Hypovolaemic shock [None]
  - Hypoglycaemia [None]
  - Anaemia [None]
  - Coma [None]

NARRATIVE: CASE EVENT DATE: 20221102
